FAERS Safety Report 19561905 (Version 1)
Quarter: 2021Q3

REPORT INFORMATION
  Report Type: Spontaneous
  Country: US (occurrence: US)
  Receive Date: 20210716
  Receipt Date: 20210716
  Transmission Date: 20211014
  Serious: No
  Sender: FDA-Public Use
  Company Number: None

PATIENT
  Age: 76 Year
  Sex: Female
  Weight: 49.9 kg

DRUGS (8)
  1. GLUCOSAMINE [Concomitant]
     Active Substance: GLUCOSAMINE
  2. LORAZEPAM. [Concomitant]
     Active Substance: LORAZEPAM
  3. MILK THISTLE [Concomitant]
     Active Substance: DIETARY SUPPLEMENT\HERBALS\MILK THISTLE
  4. CALCIUM [Concomitant]
     Active Substance: CALCIUM
  5. PREMARIN [Concomitant]
     Active Substance: ESTROGENS, CONJUGATED
  6. LEVOFLOXACIN 500MG TABLET (COMMONLY KNOWN AS LEVAQUIN) [Suspect]
     Active Substance: LEVOFLOXACIN
     Indication: MALIGNANT MELANOMA IN SITU
     Dosage: ?          QUANTITY:5 DF DOSAGE FORM;?
     Route: 048
     Dates: start: 20210609, end: 20210609
  7. DAILY VITAMIN [Concomitant]
     Active Substance: VITAMINS
  8. VITAMIN C [Concomitant]
     Active Substance: ASCORBIC ACID

REACTIONS (14)
  - Balance disorder [None]
  - Distractibility [None]
  - Confusional state [None]
  - Pruritus [None]
  - Arthralgia [None]
  - Aphasia [None]
  - Burning sensation [None]
  - Gait disturbance [None]
  - Vision blurred [None]
  - Hypertension [None]
  - Feeling abnormal [None]
  - Impaired driving ability [None]
  - Pain in extremity [None]
  - Memory impairment [None]
